FAERS Safety Report 4980360-3 (Version None)
Quarter: 2006Q2

REPORT INFORMATION
  Report Type: 
  Country: None (occurrence: None)
  Receive Date: 20060420
  Receipt Date: 20060420
  Transmission Date: 20061013
  Serious: Yes (Hospitalization)
  Sender: FDA-Public Use
  Company Number: None

PATIENT
  Sex: Male
  Weight: 100 kg

DRUGS (2)
  1. FILGRASTIM    300MCG/0.5ML    AMGEN [Suspect]
     Dosage: 600LMCG  QD X 5DAYS SQ
     Route: 058
     Dates: start: 20060308
  2. FILGRASTIM    480MCG/0.8 ML     AMGEN [Suspect]
     Dosage: 480MCG   QD X 5 DAYS    SQ
     Route: 058
     Dates: start: 20060308

REACTIONS (6)
  - ABDOMINAL PAIN UPPER [None]
  - COMPUTERISED TOMOGRAM ABNORMAL [None]
  - HYPERPLASIA [None]
  - LEUKOCYTOSIS [None]
  - PELVIC HAEMORRHAGE [None]
  - SPLEEN DISORDER [None]
